FAERS Safety Report 10401764 (Version 1)
Quarter: 2014Q3

REPORT INFORMATION
  Report Type: Not Available
  Country: CN (occurrence: CN)
  Receive Date: 20140822
  Receipt Date: 20140822
  Transmission Date: 20150326
  Serious: Yes (Hospitalization)
  Sender: FDA-Public Use
  Company Number: CN-MUNDIPHARMA DS AND PHARMACOVIGILANCE-GBR-2014-0020330

PATIENT
  Age: 59 Year
  Sex: Male
  Weight: 63 kg

DRUGS (4)
  1. MS CONTIN [Suspect]
     Active Substance: MORPHINE SULFATE
     Indication: PAIN
     Dosage: 60 MG, Q8H
     Route: 048
     Dates: start: 20121215, end: 20121219
  2. MS CONTIN [Suspect]
     Active Substance: MORPHINE SULFATE
     Dosage: 90 MG, BID
     Route: 048
     Dates: start: 20121118, end: 20121130
  3. MORPHINE HYDROCHLORIDE [Suspect]
     Active Substance: MORPHINE HYDROCHLORIDE
     Dosage: 10 MG, DAILY
     Route: 042
     Dates: start: 20121120, end: 20121120
  4. MORPHINE HYDROCHLORIDE [Suspect]
     Active Substance: MORPHINE HYDROCHLORIDE
     Indication: PAIN
     Dosage: 10 MG, DAILY
     Route: 042
     Dates: start: 20121124, end: 20121128

REACTIONS (3)
  - Constipation [Recovering/Resolving]
  - Vomiting [Recovering/Resolving]
  - Muscular weakness [Recovering/Resolving]

NARRATIVE: CASE EVENT DATE: 20121119
